FAERS Safety Report 18467497 (Version 1)
Quarter: 2020Q4

REPORT INFORMATION
  Report Type: Spontaneous
  Country: US (occurrence: US)
  Receive Date: 20201104
  Receipt Date: 20201104
  Transmission Date: 20210114
  Serious: Yes (Other)
  Sender: FDA-Public Use
  Company Number: None

PATIENT
  Age: 66 Year
  Sex: Female
  Weight: 55.35 kg

DRUGS (6)
  1. VITAMIN B12 [Concomitant]
     Active Substance: CYANOCOBALAMIN
  2. ALBUTEROL SULFATE HFA INHALATION AEROSOL 90 MCG PER ACTIVATION [Suspect]
     Active Substance: ALBUTEROL SULFATE
     Indication: CHRONIC OBSTRUCTIVE PULMONARY DISEASE
     Dosage: ?          QUANTITY:200 SPRAY(S);?
     Route: 055
     Dates: start: 20201007
  3. GABAPENTIN. [Concomitant]
     Active Substance: GABAPENTIN
  4. VITAMIN C [Concomitant]
     Active Substance: ASCORBIC ACID
  5. BUPROPRION [Concomitant]
     Active Substance: BUPROPION
  6. TYLENOL [Concomitant]
     Active Substance: ACETAMINOPHEN

REACTIONS (3)
  - Product substitution issue [None]
  - Pulmonary congestion [None]
  - Chronic obstructive pulmonary disease [None]

NARRATIVE: CASE EVENT DATE: 20201015
